FAERS Safety Report 23103405 (Version 1)
Quarter: 2023Q4

REPORT INFORMATION
  Report Type: Spontaneous
  Country: US (occurrence: US)
  Receive Date: 20231025
  Receipt Date: 20231025
  Transmission Date: 20240110
  Serious: No
  Sender: FDA-Public Use
  Company Number: US-SA-SAC20231019000068

PATIENT
  Sex: Male

DRUGS (1)
  1. DUPIXENT [Suspect]
     Active Substance: DUPILUMAB
     Indication: Eczema
     Dosage: 300MG EVERY 14 DAYS
     Route: 058
     Dates: start: 202110

REACTIONS (3)
  - Eczema [Unknown]
  - Inappropriate schedule of product administration [Unknown]
  - Injection site vesicles [Unknown]
